FAERS Safety Report 9378006 (Version 1)
Quarter: 2013Q3

REPORT INFORMATION
  Report Type: Spontaneous
  Country: AU (occurrence: AU)
  Receive Date: 20130701
  Receipt Date: 20130701
  Transmission Date: 20140515
  Serious: Yes (Death)
  Sender: FDA-Public Use
  Company Number: AU-B.I. PHARMACEUTICALS,INC./RIDGEFIELD-2013-AU-00780AU

PATIENT
  Age: 93 Year
  Sex: Male

DRUGS (12)
  1. PRADAXA [Suspect]
     Indication: CEREBROVASCULAR ACCIDENT PROPHYLAXIS
     Dates: start: 20110831
  2. PRADAXA [Suspect]
     Indication: ATRIAL FIBRILLATION
  3. EFEXOR XR [Concomitant]
  4. GAVISCON [Concomitant]
  5. LASIX [Concomitant]
  6. LIPITOR [Concomitant]
  7. MAGMIN [Concomitant]
  8. NEXIUM [Concomitant]
  9. OROXINE [Concomitant]
  10. NITROLINGUAL PUMPSPRAY [Concomitant]
     Dosage: PUMPSPRAY
  11. TEMAZE [Concomitant]
     Indication: INSOMNIA
  12. TRANSIDERMNITRO [Concomitant]

REACTIONS (1)
  - Death [Fatal]
